FAERS Safety Report 16708934 (Version 1)
Quarter: 2019Q3

REPORT INFORMATION
  Report Type: Spontaneous
  Country: PL (occurrence: PL)
  Receive Date: 20190816
  Receipt Date: 20190816
  Transmission Date: 20191004
  Serious: Yes (Life-Threatening)
  Sender: FDA-Public Use
  Company Number: PL-TEVA-2019-PL-1091770

PATIENT
  Age: 73 Year
  Sex: Male
  Weight: 64 kg

DRUGS (5)
  1. DEXAMETHASON [Concomitant]
     Active Substance: DEXAMETHASONE
     Indication: PREMEDICATION
  2. OXALIPLATIN. [Suspect]
     Active Substance: OXALIPLATIN
     Indication: NEOPLASM MALIGNANT
     Route: 042
  3. SODIUM CHLORIDE 0.9% [Concomitant]
     Active Substance: SODIUM CHLORIDE
  4. ONDANSETRON [Concomitant]
     Active Substance: ONDANSETRON
     Indication: PREMEDICATION
  5. CO-PRENESSA 4 MG/1,25 MG [Concomitant]
     Indication: HYPERTENSION

REACTIONS (2)
  - Blood pressure increased [Recovered/Resolved]
  - Dyspnoea [Recovered/Resolved]

NARRATIVE: CASE EVENT DATE: 20150429
